FAERS Safety Report 25269696 (Version 1)
Quarter: 2025Q2

REPORT INFORMATION
  Report Type: Spontaneous
  Country: US (occurrence: None)
  Receive Date: 20250505
  Receipt Date: 20250505
  Transmission Date: 20250717
  Serious: Yes (Hospitalization)
  Sender: FDA-CTU
  Company Number: None

PATIENT
  Sex: Female

DRUGS (11)
  1. KESIMPTA [Suspect]
     Active Substance: OFATUMUMAB
     Indication: Multiple sclerosis
  2. IAUBAGIO TAB 14MG [Concomitant]
  3. BACLOFEN [Concomitant]
     Active Substance: BACLOFEN
  4. BACLOFEN TAB 20MG [Concomitant]
  5. BRIMONIDINE SOL 0.2% OP [Concomitant]
  6. BUSPIRONE TAB5MG [Concomitant]
  7. CALCIUM TAB 600MG [Concomitant]
  8. CLONAZEPAM TAB 0.5MG [Concomitant]
  9. DIAZEPAM TAB 5MG [Concomitant]
  10. ESTRADIOL DIS 0.1MG [Concomitant]
  11. ACETAMINOPHEN\HYDROCODONE [Concomitant]
     Active Substance: ACETAMINOPHEN\HYDROCODONE

REACTIONS (1)
  - Hospitalisation [None]
